FAERS Safety Report 7279731-4 (Version None)
Quarter: 2011Q1

REPORT INFORMATION
  Report Type: 
  Country: None (occurrence: None)
  Receive Date: 20110208
  Receipt Date: 20110201
  Transmission Date: 20110831
  Serious: Yes (Life-Threatening, Other)
  Sender: FDA-Public Use
  Company Number: US-PFIZER INC-2011023720

PATIENT
  Sex: Female
  Weight: 62.585 kg

DRUGS (2)
  1. ATIVAN [Suspect]
     Dosage: 0.5 MG, 1X/DAY
     Route: 048
     Dates: start: 20110124, end: 20110101
  2. ZITHROMAX [Suspect]
     Indication: SINUSITIS
     Dosage: 500 MG, 1X/DAY
     Route: 048
     Dates: start: 20110122, end: 20110123

REACTIONS (14)
  - FEELING ABNORMAL [None]
  - PAIN [None]
  - NERVOUSNESS [None]
  - MYALGIA [None]
  - MOVEMENT DISORDER [None]
  - INSOMNIA [None]
  - PANIC ATTACK [None]
  - ANXIETY [None]
  - TINNITUS [None]
  - TREMOR [None]
  - FLATULENCE [None]
  - VOMITING [None]
  - ABDOMINAL PAIN UPPER [None]
  - DIARRHOEA [None]
